FAERS Safety Report 23911416 (Version 1)
Quarter: 2024Q2

REPORT INFORMATION
  Report Type: Spontaneous
  Country: US (occurrence: US)
  Receive Date: 20240528
  Receipt Date: 20240528
  Transmission Date: 20240716
  Serious: No
  Sender: FDA-Public Use
  Company Number: US-SANDOZ-SDZ2024US052674

PATIENT
  Age: 53 Year
  Sex: Male
  Weight: 100.69 kg

DRUGS (5)
  1. ATORVASTATIN CALCIUM [Suspect]
     Active Substance: ATORVASTATIN CALCIUM
     Indication: Hepatic steatosis
     Dosage: UNK
     Route: 065
  2. ATORVASTATIN CALCIUM [Suspect]
     Active Substance: ATORVASTATIN CALCIUM
     Dosage: UNK, UPPED ATORVASTATIN TO 40MG
     Route: 065
  3. AMLODIPINE [Suspect]
     Active Substance: AMLODIPINE BESYLATE
     Indication: Hepatic steatosis
     Dosage: UNK
     Route: 065
  4. AMLODIPINE [Suspect]
     Active Substance: AMLODIPINE BESYLATE
     Dosage: UNK, CHANGED TO THEN 10G
     Route: 065
  5. HYDROCHLOROTHIAZIDE\VALSARTAN [Suspect]
     Active Substance: HYDROCHLOROTHIAZIDE\VALSARTAN
     Indication: Hepatic steatosis
     Dosage: UNK, VALSARTAN 320 MG-HYDROCHLOROTHIAZIDE 25 MG
     Route: 065

REACTIONS (7)
  - Blood cholesterol increased [Recovering/Resolving]
  - Blood triglycerides increased [Unknown]
  - Gamma-glutamyltransferase increased [Unknown]
  - Non-alcoholic fatty liver [Unknown]
  - Serum ferritin increased [Unknown]
  - Alanine aminotransferase increased [Not Recovered/Not Resolved]
  - Aspartate aminotransferase increased [Not Recovered/Not Resolved]
